FAERS Safety Report 6260621-0 (Version None)
Quarter: 2009Q3

REPORT INFORMATION
  Report Type: 
  Country: None (occurrence: None)
  Receive Date: 20090706
  Receipt Date: 20090619
  Transmission Date: 20100115
  Serious: No
  Sender: FDA-Public Use
  Company Number: 2009-199136-NL

PATIENT
  Sex: Male

DRUGS (1)
  1. DANAPAROID SODIUM [Suspect]
     Dosage: DF

REACTIONS (1)
  - PLATELET COUNT DECREASED [None]
